FAERS Safety Report 23244664 (Version 1)
Quarter: 2023Q4

REPORT INFORMATION
  Report Type: Spontaneous
  Country: HR (occurrence: HR)
  Receive Date: 20231130
  Receipt Date: 20231130
  Transmission Date: 20240109
  Serious: Yes (Other)
  Sender: FDA-Public Use
  Company Number: HR-009507513-2311HRV008820

PATIENT
  Age: 73 Year
  Sex: Female

DRUGS (1)
  1. PEMBROLIZUMAB [Suspect]
     Active Substance: PEMBROLIZUMAB
     Indication: Lung adenocarcinoma
     Dosage: CYCLICAL
     Dates: start: 201812, end: 2021

REACTIONS (6)
  - Malignant neoplasm progression [Unknown]
  - Cerebral atrophy [Unknown]
  - Encephalomalacia [Unknown]
  - Cerebrovascular disorder [Unknown]
  - Spinal disorder [Unknown]
  - Myalgia [Unknown]

NARRATIVE: CASE EVENT DATE: 20210401
